FAERS Safety Report 6993056-3 (Version None)
Quarter: 2010Q3

REPORT INFORMATION
  Report Type: 
  Country: None (occurrence: None)
  Receive Date: 20100917
  Receipt Date: 20100722
  Transmission Date: 20110219
  Serious: Yes (Other)
  Sender: FDA-Public Use
  Company Number: US-ASTRAZENECA-2009SE32620

PATIENT
  Age: 50 Year
  Sex: Female
  Weight: 49.9 kg

DRUGS (3)
  1. SEROQUEL [Suspect]
     Indication: MENTAL DISORDER
     Route: 048
     Dates: start: 20030101
  2. SEROQUEL [Suspect]
     Indication: DEPRESSION
     Route: 048
     Dates: start: 20030101
  3. RAMERON [Concomitant]
     Indication: SCHIZOPHRENIA

REACTIONS (3)
  - HYPERGLYCAEMIA [None]
  - PANCREATITIS [None]
  - TYPE 2 DIABETES MELLITUS [None]
